FAERS Safety Report 6153383-9 (Version None)
Quarter: 2009Q2

REPORT INFORMATION
  Report Type: 
  Country: None (occurrence: None)
  Receive Date: 20090409
  Receipt Date: 20090409
  Transmission Date: 20091009
  Serious: Yes (Other)
  Sender: FDA-Public Use
  Company Number: None

PATIENT

DRUGS (2)
  1. RITALIN [Suspect]
  2. CELEBREX [Suspect]

REACTIONS (4)
  - DIARRHOEA [None]
  - DOCUMENTED HYPERSENSITIVITY TO ADMINISTERED DRUG [None]
  - HYPERSOMNIA [None]
  - ILL-DEFINED DISORDER [None]
